FAERS Safety Report 8085882-7 (Version None)
Quarter: 2012Q1

REPORT INFORMATION
  Report Type: 
  Country: None (occurrence: None)
  Receive Date: 20120128
  Receipt Date: 20110417
  Transmission Date: 20120608
  Serious: No
  Sender: FDA-Public Use
  Company Number: US-ABBOTT-11P-163-0720523-00

PATIENT
  Sex: Female
  Weight: 79.45 kg

DRUGS (3)
  1. HUMIRA [Suspect]
     Indication: CROHN'S DISEASE
     Route: 058
     Dates: start: 20080101
  2. ZYRTEC [Concomitant]
     Indication: HYPERSENSITIVITY
     Route: 048
  3. LEVOTHYROXINE SODIUM [Concomitant]
     Indication: HYPOTHYROIDISM
     Route: 048
     Dates: start: 20040101

REACTIONS (2)
  - GASTRITIS [None]
  - GESTATIONAL HYPERTENSION [None]
